FAERS Safety Report 24694935 (Version 1)
Quarter: 2024Q4

REPORT INFORMATION
  Report Type: Spontaneous
  Country: US (occurrence: None)
  Receive Date: 20241203
  Receipt Date: 20241203
  Transmission Date: 20250115
  Serious: Yes (unspecified)
  Sender: Public
  Company Number: None

PATIENT
  Age: 44 Year
  Sex: Male

DRUGS (1)
  1. CAPECITABINE [Suspect]
     Active Substance: CAPECITABINE
     Indication: Neuroendocrine carcinoma
     Dosage: OTHER FREQUENCY : BIDFOR14DAYSTHEN7DAYSOFF ;?

REACTIONS (3)
  - Dehydration [None]
  - Diarrhoea [None]
  - Asthenia [None]
